FAERS Safety Report 23239029 (Version 2)
Quarter: 2023Q4

REPORT INFORMATION
  Report Type: Spontaneous
  Country: JP (occurrence: JP)
  Receive Date: 20231129
  Receipt Date: 20231221
  Transmission Date: 20240109
  Serious: Yes (Hospitalization, Other)
  Sender: FDA-Public Use
  Company Number: JP-SA-2023SA365893

PATIENT
  Age: 83 Year
  Sex: Female

DRUGS (1)
  1. KEVZARA [Suspect]
     Active Substance: SARILUMAB
     Indication: Rheumatic disorder
     Dosage: 150 MG, QOW
     Route: 058

REACTIONS (3)
  - Cerebral haemorrhage [Recovered/Resolved]
  - Seizure [Not Recovered/Not Resolved]
  - Intercepted product storage error [Unknown]
